FAERS Safety Report 17583834 (Version 1)
Quarter: 2020Q1

REPORT INFORMATION
  Report Type: Spontaneous
  Country: CA (occurrence: CA)
  Receive Date: 20200326
  Receipt Date: 20200326
  Transmission Date: 20200409
  Serious: Yes (Other)
  Sender: FDA-Public Use
  Company Number: CA-ADVANZ PHARMA-202003001844

PATIENT

DRUGS (16)
  1. HYDROXYCHLOROQUINE [Suspect]
     Active Substance: HYDROXYCHLOROQUINE
     Indication: RHEUMATOID ARTHRITIS
     Dosage: 200 MG, BID
     Route: 065
     Dates: start: 19920227, end: 19920312
  2. ARAVA [Suspect]
     Active Substance: LEFLUNOMIDE
     Indication: RHEUMATOID ARTHRITIS
     Dosage: 10 MG, QD
     Route: 065
     Dates: start: 20180608
  3. CORTISONE [Concomitant]
     Active Substance: CORTISONE
     Dosage: UNK
     Route: 014
  4. XELJANZ [Concomitant]
     Active Substance: TOFACITINIB CITRATE
     Indication: RHEUMATOID ARTHRITIS
  5. TYLENOL [Concomitant]
     Active Substance: ACETAMINOPHEN
     Indication: PAIN
     Dosage: UNK
  6. FOLIC ACID. [Concomitant]
     Active Substance: FOLIC ACID
     Dosage: UNK
  7. PREVACID [Concomitant]
     Active Substance: LANSOPRAZOLE
     Dosage: UNK
  8. SALAZOPYRIN [Concomitant]
     Active Substance: SULFASALAZINE
     Dosage: UNK
     Dates: start: 19920227, end: 19920331
  9. SOLGANAL [Concomitant]
     Active Substance: AUROTHIOGLUCOSE
     Dosage: UNK
     Dates: start: 19920116, end: 19920227
  10. CODEINE [Concomitant]
     Active Substance: CODEINE
     Dosage: UNK
  11. FLURBIPROFEN. [Concomitant]
     Active Substance: FLURBIPROFEN
     Indication: PAIN
     Dosage: UNK
  12. PENICILLAMINE [Concomitant]
     Active Substance: PENICILLAMINE
     Dosage: UNK
     Dates: start: 199206
  13. ARAVA [Suspect]
     Active Substance: LEFLUNOMIDE
     Dosage: 20 MG, QD
     Route: 065
     Dates: start: 20190408, end: 20190705
  14. METHOTREXATE. [Concomitant]
     Active Substance: METHOTREXATE
     Indication: RHEUMATOID ARTHRITIS
     Dosage: UNK
     Dates: start: 19920828
  15. HYDROXYCHLOROQUINE [Suspect]
     Active Substance: HYDROXYCHLOROQUINE
     Dosage: UNK
     Route: 065
     Dates: start: 1992
  16. GOLD [Concomitant]
     Active Substance: GOLD
     Indication: RHEUMATOID ARTHRITIS
     Dosage: UNK
     Dates: start: 1992

REACTIONS (3)
  - Neutropenia [Unknown]
  - Rash [Unknown]
  - Drug ineffective [Unknown]

NARRATIVE: CASE EVENT DATE: 1992
